FAERS Safety Report 5895542-6 (Version None)
Quarter: 2008Q3

REPORT INFORMATION
  Report Type: 
  Country: None (occurrence: None)
  Receive Date: 20080924
  Receipt Date: 20071217
  Transmission Date: 20090109
  Serious: Yes (Other)
  Sender: FDA-Public Use
  Company Number: US-ASTRAZENECA-2006UW02185

PATIENT
  Sex: Male

DRUGS (3)
  1. SEROQUEL [Suspect]
     Indication: SLEEP DISORDER
     Route: 048
     Dates: start: 20060206
  2. SEROQUEL [Suspect]
     Route: 048
  3. AMBIEN [Concomitant]

REACTIONS (2)
  - SOMNOLENCE [None]
  - URINARY RETENTION [None]
